FAERS Safety Report 10742121 (Version 1)
Quarter: 2015Q1

REPORT INFORMATION
  Report Type: Spontaneous
  Country: US (occurrence: US)
  Receive Date: 20150127
  Receipt Date: 20150127
  Transmission Date: 20150721
  Serious: No
  Sender: FDA-Public Use
  Company Number: US-ELI_LILLY_AND_COMPANY-US201501005379

PATIENT
  Sex: Male

DRUGS (7)
  1. TRAMADOL [Concomitant]
     Active Substance: TRAMADOL
     Dosage: UNK, UNKNOWN
  2. DICLOFENAC SODIUM. [Concomitant]
     Active Substance: DICLOFENAC SODIUM
     Dosage: UNK, UNKNOWN
  3. CYCLOBENZAPRINE [Concomitant]
     Active Substance: CYCLOBENZAPRINE
     Dosage: UNK, UNKNOWN
  4. LEVEMIR [Concomitant]
     Active Substance: INSULIN DETEMIR
     Dosage: UNK, UNKNOWN
  5. NAPROXEN. [Concomitant]
     Active Substance: NAPROXEN
     Dosage: UNK, UNKNOWN
  6. RANITIDINE [Concomitant]
     Active Substance: RANITIDINE\RANITIDINE HYDROCHLORIDE
     Dosage: UNK, UNKNOWN
  7. HUMALOG [Suspect]
     Active Substance: INSULIN LISPRO
     Indication: TYPE 2 DIABETES MELLITUS
     Dosage: 36 U, BID
     Route: 065
     Dates: start: 2012

REACTIONS (2)
  - Rash [Unknown]
  - Pain of skin [Not Recovered/Not Resolved]
